FAERS Safety Report 15756080 (Version 3)
Quarter: 2019Q1

REPORT INFORMATION
  Report Type: Spontaneous
  Country: JP (occurrence: JP)
  Receive Date: 20181224
  Receipt Date: 20190225
  Transmission Date: 20190417
  Serious: Yes (Death, Other)
  Sender: FDA-Public Use
  Company Number: JP-009507513-1812JPN002813J

PATIENT
  Age: 51 Year
  Sex: Male
  Weight: 79 kg

DRUGS (19)
  1. TRAZODONE HYDROCHLORIDE. [Suspect]
     Active Substance: TRAZODONE HYDROCHLORIDE
     Indication: INSOMNIA
     Dosage: 1 DOSAGE FORM, ONCE OR TWICE DAILY
     Route: 048
     Dates: start: 201611
  2. RINDERON V [Suspect]
     Active Substance: BETAMETHASONE VALERATE
     Indication: NAUSEA
     Dosage: 1 DOSAGE FORM, QD
     Route: 042
     Dates: start: 201611
  3. RINDERON V [Suspect]
     Active Substance: BETAMETHASONE VALERATE
     Indication: MALAISE
  4. LYRICA [Suspect]
     Active Substance: PREGABALIN
     Indication: CANCER PAIN
     Dosage: 1 DOSAGE FORM, BID
     Route: 048
  5. CONTOMIN [Suspect]
     Active Substance: CHLORPROMAZINE
     Indication: INSOMNIA
     Dosage: 1 DOSAGE FORM, QD
     Route: 048
     Dates: start: 201612, end: 201701
  6. ONEDURO [Suspect]
     Active Substance: FENTANYL
     Indication: CANCER PAIN
     Dosage: 8.4 MILLIGRAM, QD
  7. VERAPAMIL HCL [Suspect]
     Active Substance: VERAPAMIL HYDROCHLORIDE
     Indication: CANCER PAIN
     Dosage: 1 DOSAGE FORM, ONCE OR TWICE DAILY
     Route: 054
  8. BELSOMRA [Suspect]
     Active Substance: SUVOREXANT
     Indication: INSOMNIA
     Dosage: 1 DOSAGE FORM, QD
     Route: 048
     Dates: start: 201611, end: 201701
  9. MAGMITT [Concomitant]
     Active Substance: MAGNESIUM OXIDE
     Indication: CONSTIPATION
     Dosage: 1 DOSAGE FORM, BID
     Route: 048
  10. REFLEX [Suspect]
     Active Substance: MIRTAZAPINE
     Indication: INSOMNIA
     Dosage: 1 DOSAGE FORM, QD
     Route: 048
     Dates: start: 201611, end: 201612
  11. SERENACE [Suspect]
     Active Substance: HALOPERIDOL
     Indication: NAUSEA
     Dosage: 1 DOSAGE FORM, QD
     Route: 042
     Dates: start: 201611, end: 201612
  12. SERENACE [Suspect]
     Active Substance: HALOPERIDOL
     Indication: VOMITING
  13. PURSENNID [Concomitant]
     Active Substance: SENNOSIDES A AND B
     Indication: CONSTIPATION
     Dosage: 2 DOSAGE FORM, QD
     Route: 048
  14. NOVAMIN (PROCHLORPERAZINE MALEATE) [Suspect]
     Active Substance: PROCHLORPERAZINE MALEATE
     Indication: NAUSEA
     Dosage: 1 DOSAGE FORM, TID
     Route: 048
  15. NOVAMIN (PROCHLORPERAZINE MALEATE) [Suspect]
     Active Substance: PROCHLORPERAZINE MALEATE
     Indication: VOMITING
  16. BROTIZOLAM [Suspect]
     Active Substance: BROTIZOLAM
     Indication: INSOMNIA
     Dosage: 1 DOSAGE FORM, QD
     Route: 048
  17. ROPION [Concomitant]
     Active Substance: FLURBIPROFEN AXETIL
     Indication: CANCER PAIN
     Dosage: 1 DOSAGE FORM, BID
     Route: 042
  18. RINDERON V [Suspect]
     Active Substance: BETAMETHASONE VALERATE
     Indication: VOMITING
  19. ABSTRAL [Suspect]
     Active Substance: FENTANYL CITRATE
     Indication: CANCER PAIN
     Dosage: 1 DOSAGE FORM, ZERO OR ONCE DAILY
     Route: 060

REACTIONS (7)
  - Akathisia [Unknown]
  - Language disorder [None]
  - Delirium [Not Recovered/Not Resolved]
  - Organ failure [Fatal]
  - Mania [Unknown]
  - Disease complication [None]
  - Insomnia [Recovering/Resolving]

NARRATIVE: CASE EVENT DATE: 201611
